FAERS Safety Report 20154398 (Version 1)
Quarter: 2021Q4

REPORT INFORMATION
  Report Type: Spontaneous
  Country: US (occurrence: US)
  Receive Date: 20211207
  Receipt Date: 20211207
  Transmission Date: 20220303
  Serious: No
  Sender: FDA-Public Use
  Company Number: US-BION-009870

PATIENT
  Age: 61 Year
  Sex: Female

DRUGS (8)
  1. ERGOCALCIFEROL [Suspect]
     Active Substance: ERGOCALCIFEROL
     Indication: Product used for unknown indication
     Dosage: EVERY OTHER DAY
  2. AMLODIPINE [Suspect]
     Active Substance: AMLODIPINE BESYLATE
     Indication: Hypertension
  3. ATORVASTATIN [Suspect]
     Active Substance: ATORVASTATIN
     Indication: Blood cholesterol increased
     Dosage: STRENGTH:  40MG
  4. PLAQUENIL [Suspect]
     Active Substance: HYDROXYCHLOROQUINE SULFATE
     Indication: Autoimmune disorder
     Dosage: 2 PLAQUENIL DAILY
  5. VITAMINS NOS [Suspect]
     Active Substance: VITAMINS
     Indication: Product used for unknown indication
  6. ILUMYA [Concomitant]
     Active Substance: TILDRAKIZUMAB-ASMN
     Indication: Product used for unknown indication
  7. HERBALS\TURMERIC [Concomitant]
     Active Substance: HERBALS\TURMERIC
     Indication: Inflammation
  8. METAMUCIL [Concomitant]
     Active Substance: PLANTAGO SEED
     Indication: Dyspepsia

REACTIONS (1)
  - Dyspepsia [Unknown]
